FAERS Safety Report 5440476-4 (Version None)
Quarter: 2007Q3

REPORT INFORMATION
  Report Type: 
  Country: None (occurrence: None)
  Receive Date: 20070831
  Receipt Date: 20070820
  Transmission Date: 20080115
  Serious: Yes (Life-Threatening)
  Sender: FDA-Public Use
  Company Number: JP-ROCHE-512715

PATIENT
  Age: 71 Year
  Sex: Male

DRUGS (3)
  1. PEG-INTERFERON A-2A (RO 25-8310) [Suspect]
     Dosage: ACTION TAKEN: DOSE DECREASED.
     Route: 058
     Dates: start: 20040326, end: 20040409
  2. PEG-INTERFERON A-2A (RO 25-8310) [Suspect]
     Dosage: ACTION TAKEN: DOSE INCREASED.
     Route: 058
     Dates: start: 20040416, end: 20050218
  3. PEG-INTERFERON A-2A (RO 25-8310) [Suspect]
     Dosage: ACTION TAKEN: DISCONTINUED.
     Route: 058
     Dates: start: 20050225, end: 20050520

REACTIONS (3)
  - HEPATIC NEOPLASM MALIGNANT [None]
  - NEUTROPHIL COUNT DECREASED [None]
  - RECTAL CANCER [None]
